FAERS Safety Report 9476103 (Version 2)
Quarter: 2013Q4

REPORT INFORMATION
  Report Type: Spontaneous
  Country: DE (occurrence: None)
  Receive Date: 20130821
  Receipt Date: 20131031
  Transmission Date: 20140711
  Serious: Yes (Hospitalization)
  Sender: FDA-Public Use
  Company Number: NGX_01931_2013

PATIENT
  Age: 67 Year
  Sex: Male

DRUGS (2)
  1. QUTENZA [Suspect]
     Indication: NEURALGIA
     Dosage: 0.125 DF 1X [1/8 PATCH, APPLIED AT LEFT MIDDLE TOE]
     Route: 061
     Dates: start: 20130523, end: 20130523
  2. QUTENZA [Suspect]
     Indication: HYPOAESTHESIA
     Dosage: 0.125 DF 1X [1/8 PATCH, APPLIED AT LEFT MIDDLE TOE]
     Route: 061
     Dates: start: 20130523, end: 20130523

REACTIONS (2)
  - Necrosis [None]
  - Application site necrosis [None]
